FAERS Safety Report 9045817 (Version 1)
Quarter: 2013Q1

REPORT INFORMATION
  Report Type: Report from Study
  Country: US (occurrence: US)
  Receive Date: 20130201
  Receipt Date: 20130201
  Transmission Date: 20140127
  Serious: Yes (Hospitalization)
  Sender: FDA-Public Use
  Company Number: US-ABBOTT-12P-163-1010183-00

PATIENT
  Age: 64 Year
  Sex: Male

DRUGS (4)
  1. HUMIRA [Suspect]
     Indication: RHEUMATOID ARTHRITIS
  2. DIURAN 160 [Concomitant]
     Indication: HYPERTENSION
     Dosage: 25 MG DAILY
  3. LIPITOR [Concomitant]
     Indication: BLOOD CHOLESTEROL
     Dosage: 20 MG DAILY
  4. DEXILANT [Concomitant]
     Indication: GASTRIC ULCER
     Dosage: 60 MG DAILY

REACTIONS (1)
  - Cerebrovascular accident [Recovering/Resolving]
